FAERS Safety Report 8001050-9 (Version None)
Quarter: 2011Q4

REPORT INFORMATION
  Report Type: 
  Country: None (occurrence: None)
  Receive Date: 20111222
  Receipt Date: 20110909
  Transmission Date: 20120403
  Serious: No
  Sender: FDA-Public Use
  Company Number: US-GLAXOSMITHKLINE-A0944074A

PATIENT
  Age: 61 Year
  Sex: Female

DRUGS (3)
  1. PULMICORT [Concomitant]
  2. FLONASE [Suspect]
     Indication: SINUSITIS
     Dosage: 1SPR PER DAY
     Route: 045
     Dates: start: 20100901, end: 20110801
  3. ALBUTEROL [Concomitant]

REACTIONS (2)
  - EPISTAXIS [None]
  - DRUG INEFFECTIVE [None]
